FAERS Safety Report 8129404-0 (Version None)
Quarter: 2012Q1

REPORT INFORMATION
  Report Type: 
  Country: None (occurrence: None)
  Receive Date: 20120103
  Receipt Date: 20110901
  Transmission Date: 20120608
  Serious: No
  Sender: FDA-Public Use
  Company Number: AE-2011-001286

PATIENT
  Age: 64 Year
  Sex: Female
  Weight: 99.7913 kg

DRUGS (6)
  1. PEGASYS [Concomitant]
  2. LANTUS [Concomitant]
  3. INCIVEK [Suspect]
     Dosage: 2250 MG (750 MG, 1 IN 8 HR), ORAL
     Route: 048
     Dates: start: 20110812
  4. ACETAMINOPHEN [Concomitant]
  5. UNKNOWN BLOOD PRESSURE MEDICATION (ANTIHYPERTENSIVES) [Concomitant]
  6. RIBAVIRIN [Concomitant]

REACTIONS (3)
  - INFLUENZA LIKE ILLNESS [None]
  - HAEMATOCRIT DECREASED [None]
  - ANAEMIA [None]
